FAERS Safety Report 12881797 (Version 1)
Quarter: 2016Q4

REPORT INFORMATION
  Report Type: Spontaneous
  Country: US (occurrence: US)
  Receive Date: 20161025
  Receipt Date: 20161025
  Transmission Date: 20170207
  Serious: No
  Sender: FDA-Public Use
  Company Number: US-JNJFOC-20160826595

PATIENT
  Age: 43 Year
  Sex: Female
  Weight: 72.58 kg

DRUGS (3)
  1. MAXALT [Concomitant]
     Active Substance: RIZATRIPTAN BENZOATE
     Route: 065
  2. ADVIL [Concomitant]
     Active Substance: IBUPROFEN
     Indication: DYSMENORRHOEA
     Route: 065
  3. STELARA [Suspect]
     Active Substance: USTEKINUMAB
     Indication: PSORIASIS
     Dosage: 0.5 ML
     Route: 058
     Dates: start: 20130304, end: 20160624

REACTIONS (3)
  - Psoriasis [Recovering/Resolving]
  - Arthralgia [Not Recovered/Not Resolved]
  - Local swelling [Recovering/Resolving]

NARRATIVE: CASE EVENT DATE: 20160625
